FAERS Safety Report 4646834-X (Version None)
Quarter: 2005Q2

REPORT INFORMATION
  Report Type: 
  Country: None (occurrence: None)
  Receive Date: 20050427
  Receipt Date: 20050420
  Transmission Date: 20051028
  Serious: Yes (Life-Threatening)
  Sender: FDA-Public Use
  Company Number: DE-ABBOTT-05P-062-0298259-00

PATIENT
  Sex: Male

DRUGS (1)
  1. FLOTRIN TABLETS [Suspect]
     Indication: DYSURIA
     Route: 048
     Dates: start: 20050319

REACTIONS (2)
  - BLOOD PRESSURE DECREASED [None]
  - SHOCK [None]
